FAERS Safety Report 5469979-3 (Version None)
Quarter: 2007Q3

REPORT INFORMATION
  Report Type: 
  Country: None (occurrence: None)
  Receive Date: 20070927
  Receipt Date: 20070917
  Transmission Date: 20080115
  Serious: Yes (Hospitalization)
  Sender: FDA-Public Use
  Company Number: AU-PFIZER INC-2005121617

PATIENT
  Sex: Male
  Weight: 87 kg

DRUGS (7)
  1. ATORVASTATIN CALCIUM [Suspect]
     Indication: CORONARY ARTERY DISEASE
     Dosage: DAILY DOSE:10MG
     Route: 048
     Dates: start: 20050221, end: 20050323
  2. ATORVASTATIN CALCIUM [Suspect]
     Dosage: DAILY DOSE:10MG
     Route: 048
  3. ASPIRIN [Concomitant]
     Route: 048
  4. POTASSIUM CHLORIDE [Concomitant]
     Route: 048
  5. RAMIPRIL [Concomitant]
     Route: 048
  6. METOPROLOL SUCCINATE [Concomitant]
     Route: 048
  7. FRUSEMIDE [Concomitant]
     Route: 048

REACTIONS (1)
  - CONFUSIONAL STATE [None]
